FAERS Safety Report 4766693-4 (Version None)
Quarter: 2005Q3

REPORT INFORMATION
  Report Type: 
  Country: None (occurrence: None)
  Receive Date: 20050912
  Receipt Date: 20050901
  Transmission Date: 20060218
  Serious: Yes (Hospitalization, Other)
  Sender: FDA-Public Use
  Company Number: 2005123392

PATIENT
  Age: 42 Year
  Sex: Male
  Weight: 102.9665 kg

DRUGS (18)
  1. GEODON [Suspect]
     Indication: ILL-DEFINED DISORDER
     Dosage: 20 MG, FOUR TIMES A DAY AS NEEDED, ORAL
     Route: 048
     Dates: start: 20040101, end: 20050701
  2. PREVACID [Concomitant]
  3. NEURONTIN [Concomitant]
  4. ZOCOR [Concomitant]
  5. ACETYLSALICYLIC ACID SRT [Concomitant]
  6. VICODIN [Concomitant]
  7. ATENOLOL [Concomitant]
  8. LISINOPRIL [Concomitant]
  9. ACTOS [Concomitant]
  10. KLONOPIN [Concomitant]
  11. ZOLOFT [Concomitant]
  12. LITHIUM [Concomitant]
  13. GLUCOVANCE [Concomitant]
  14. GARLIC [Concomitant]
  15. OMEGA 3 (FISH OIL) [Concomitant]
  16. NITROGLYCERIN [Concomitant]
  17. ATROVENT [Concomitant]
  18. RHINOCORT AQUA (BUDESONIDE) [Concomitant]

REACTIONS (11)
  - ANTIPSYCHOTIC DRUG LEVEL BELOW THERAPEUTIC [None]
  - BLOOD CALCIUM DECREASED [None]
  - BLOOD MAGNESIUM DECREASED [None]
  - BLOOD POTASSIUM DECREASED [None]
  - CORONARY ARTERY OCCLUSION [None]
  - DIABETIC COMPLICATION [None]
  - MYOCARDIAL INFARCTION [None]
  - PERICARDIAL EFFUSION [None]
  - STENT OCCLUSION [None]
  - VENTRICULAR TACHYCARDIA [None]
  - VERTIGO [None]
